FAERS Safety Report 7380321-3 (Version None)
Quarter: 2011Q1

REPORT INFORMATION
  Report Type: 
  Country: None (occurrence: None)
  Receive Date: 20110329
  Receipt Date: 20110317
  Transmission Date: 20110831
  Serious: Yes (Hospitalization, Other)
  Sender: FDA-Public Use
  Company Number: US-ROCHE-672499

PATIENT
  Sex: Male
  Weight: 77.1 kg

DRUGS (2)
  1. ACCUTANE [Suspect]
     Route: 065
     Dates: start: 20000325, end: 20000904
  2. MINOCYCLINE [Concomitant]
     Indication: ACNE

REACTIONS (13)
  - INFLAMMATORY BOWEL DISEASE [None]
  - PRESYNCOPE [None]
  - LOWER LIMB FRACTURE [None]
  - CROHN'S DISEASE [None]
  - SUICIDAL IDEATION [None]
  - DEPRESSION [None]
  - ABDOMINAL DISCOMFORT [None]
  - VISUAL IMPAIRMENT [None]
  - COLITIS ULCERATIVE [None]
  - CHEILITIS [None]
  - INTESTINAL HAEMORRHAGE [None]
  - CONJUNCTIVITIS [None]
  - HEADACHE [None]
